FAERS Safety Report 21233840 (Version 1)
Quarter: 2022Q3

REPORT INFORMATION
  Report Type: Spontaneous
  Country: US (occurrence: None)
  Receive Date: 20220819
  Receipt Date: 20220819
  Transmission Date: 20221026
  Serious: No
  Sender: FDA-Public Use
  Company Number: None

PATIENT
  Age: 68 Year
  Sex: Female

DRUGS (1)
  1. HUMIRA [Suspect]
     Active Substance: ADALIMUMAB
     Indication: Uveitis
     Dosage: INJECT 300MG (2 PENS) SUBCUTANEOUSLY  ON  DAY 1, 40MG (1 PEN) ON DAY 8, THEN  40MG EVERY OTHER WEEK
     Route: 058
     Dates: start: 202202

REACTIONS (2)
  - Sinus disorder [None]
  - Illness [None]
